FAERS Safety Report 13818567 (Version 1)
Quarter: 2017Q3

REPORT INFORMATION
  Report Type: Spontaneous
  Country: CN (occurrence: CN)
  Receive Date: 20170731
  Receipt Date: 20170731
  Transmission Date: 20171127
  Serious: Yes (Hospitalization)
  Sender: FDA-Public Use
  Company Number: CN-IMPAX LABORATORIES, INC-2017-IPXL-02084

PATIENT
  Age: 33 Year
  Sex: Female

DRUGS (2)
  1. DIVALPROEX SODIUM ER [Suspect]
     Active Substance: DIVALPROEX SODIUM
     Indication: SUICIDE ATTEMPT
  2. DIVALPROEX SODIUM ER [Suspect]
     Active Substance: DIVALPROEX SODIUM
     Indication: INTENTIONAL OVERDOSE
     Dosage: 100 TABLETS OF 200 MG,ONE TIME
     Route: 048

REACTIONS (10)
  - Suicide attempt [Recovered/Resolved]
  - Intentional overdose [Recovered/Resolved]
  - Coma [Recovered/Resolved]
  - Hypernatraemia [Recovered/Resolved]
  - Lactic acidosis [Recovered/Resolved]
  - Brain oedema [Recovered/Resolved]
  - Hyperammonaemia [Recovered/Resolved]
  - Thrombocytopenia [Recovered/Resolved]
  - Blood urea decreased [Recovered/Resolved]
  - Hypotension [Recovered/Resolved]
